FAERS Safety Report 4379589-7 (Version None)
Quarter: 2004Q2

REPORT INFORMATION
  Report Type: 
  Country: None (occurrence: None)
  Receive Date: 20040427
  Receipt Date: 20040220
  Transmission Date: 20050107
  Serious: Yes (Other)
  Sender: FDA-Public Use
  Company Number: 359512

PATIENT
  Sex: Female

DRUGS (1)
  1. VALCYTE [Suspect]
     Dosage: ORAL
     Route: 048
     Dates: start: 20040217

REACTIONS (1)
  - NEUTROPENIA [None]
